FAERS Safety Report 6874241-8 (Version None)
Quarter: 2010Q3

REPORT INFORMATION
  Report Type: 
  Country: None (occurrence: None)
  Receive Date: 20100723
  Receipt Date: 20090525
  Transmission Date: 20110219
  Serious: No
  Sender: FDA-Public Use
  Company Number: US-PFIZER INC-2009192721

PATIENT
  Sex: Female
  Weight: 92.532 kg

DRUGS (4)
  1. CHANTIX [Suspect]
     Indication: SMOKING CESSATION THERAPY
     Dosage: 0.5 MG, 1X/DAY
     Dates: start: 20090323
  2. NEXIUM [Concomitant]
     Indication: GASTRIC DISORDER
     Dosage: UNK
  3. ALBUTEROL [Concomitant]
     Dosage: UNK
  4. PERCOCET [Concomitant]
     Dosage: UNK

REACTIONS (3)
  - HEADACHE [None]
  - IRRITABILITY [None]
  - WRONG TECHNIQUE IN DRUG USAGE PROCESS [None]
